FAERS Safety Report 24168026 (Version 4)
Quarter: 2024Q4

REPORT INFORMATION
  Report Type: Spontaneous
  Country: US (occurrence: US)
  Receive Date: 20240802
  Receipt Date: 20241227
  Transmission Date: 20250115
  Serious: No
  Sender: SANOFI AVENTIS
  Company Number: US-SA-SAC20240729000270

PATIENT
  Age: 40 Year
  Sex: Male
  Weight: 85.45 kg

DRUGS (8)
  1. ALPROLIX [Suspect]
     Active Substance: EFTRENONACOG ALFA
     Indication: Factor IX deficiency
     Dosage: 9090 IU, QW
     Route: 042
     Dates: start: 202404
  2. ALPROLIX [Suspect]
     Active Substance: EFTRENONACOG ALFA
     Indication: Factor IX deficiency
     Dosage: 9090 IU, QW
     Route: 042
     Dates: start: 202404
  3. ALPROLIX [Suspect]
     Active Substance: EFTRENONACOG ALFA
     Dosage: 9090 IU, PRN
     Route: 042
     Dates: start: 202404
  4. ALPROLIX [Suspect]
     Active Substance: EFTRENONACOG ALFA
     Dosage: 9090 IU, PRN
     Route: 042
     Dates: start: 202404
  5. ALPROLIX [Suspect]
     Active Substance: EFTRENONACOG ALFA
     Dosage: 8410 UNITS (7990-8830), QW
     Route: 042
     Dates: start: 2024
  6. ALPROLIX [Suspect]
     Active Substance: EFTRENONACOG ALFA
     Dosage: 8410 UNITS (7990-8830), QW
     Route: 042
     Dates: start: 2024
  7. ALPROLIX [Suspect]
     Active Substance: EFTRENONACOG ALFA
     Dosage: 8550 U, QW
     Route: 042
     Dates: start: 202404
  8. ALPROLIX [Suspect]
     Active Substance: EFTRENONACOG ALFA
     Dosage: 8550 U, QW
     Route: 042
     Dates: start: 202404

REACTIONS (6)
  - Haemorrhage [Unknown]
  - Weight decreased [Unknown]
  - Arthralgia [Unknown]
  - Back pain [Unknown]
  - Haemorrhage [Unknown]
  - Weight increased [Unknown]

NARRATIVE: CASE EVENT DATE: 20240101
